FAERS Safety Report 18242756 (Version 2)
Quarter: 2020Q3

REPORT INFORMATION
  Report Type: Spontaneous
  Country: US (occurrence: US)
  Receive Date: 20200908
  Receipt Date: 20200924
  Transmission Date: 20201103
  Serious: Yes (Hospitalization)
  Sender: FDA-Public Use
  Company Number: US-IRONSHORE-JOR-2020-000060

PATIENT
  Sex: Male
  Weight: 220 kg

DRUGS (2)
  1. JORNAY PM EXTENDED?RELEASE [Suspect]
     Active Substance: METHYLPHENIDATE HYDROCHLORIDE
     Indication: ATTENTION DEFICIT HYPERACTIVITY DISORDER
     Dosage: 100 MILLIGRAM
     Route: 048
     Dates: start: 20200601
  2. JORNAY PM EXTENDED?RELEASE [Suspect]
     Active Substance: METHYLPHENIDATE HYDROCHLORIDE
     Indication: DEPRESSION

REACTIONS (2)
  - Oesophageal haemorrhage [Unknown]
  - Oesophageal obstruction [Unknown]

NARRATIVE: CASE EVENT DATE: 2020
